FAERS Safety Report 13375815 (Version 4)
Quarter: 2017Q3

REPORT INFORMATION
  Report Type: Spontaneous
  Country: US (occurrence: US)
  Receive Date: 20170328
  Receipt Date: 20170918
  Transmission Date: 20171127
  Serious: No
  Sender: FDA-Public Use
  Company Number: US-TEVA-749530ACC

PATIENT
  Sex: Female

DRUGS (72)
  1. NEXIUM [Concomitant]
     Active Substance: ESOMEPRAZOLE MAGNESIUM
  2. RANITIDINE. [Concomitant]
     Active Substance: RANITIDINE
  3. METFORMIN [Concomitant]
     Active Substance: METFORMIN HYDROCHLORIDE
  4. CARBAMAZEPIN [Concomitant]
     Active Substance: CARBAMAZEPINE
     Dosage: EXTENDED RELEASE
  5. VICODIN [Concomitant]
     Active Substance: ACETAMINOPHEN\HYDROCODONE BITARTRATE
     Dosage: 5-300MG
  6. HYDROCODONE BITARTRATE AND ACETAMINOPHEN [Concomitant]
     Active Substance: ACETAMINOPHEN\HYDROCODONE BITARTRATE
     Dosage: 5/325MG
  7. ONDANSETRON [Concomitant]
     Active Substance: ONDANSETRON
  8. PANTOPRAZOLE [Concomitant]
     Active Substance: PANTOPRAZOLE
  9. LISINOPRIL. [Concomitant]
     Active Substance: LISINOPRIL
  10. ZOFRAN [Concomitant]
     Active Substance: ONDANSETRON HYDROCHLORIDE
  11. GABAPENTIN. [Concomitant]
     Active Substance: GABAPENTIN
  12. METHYLPRED [Concomitant]
     Active Substance: METHYLPREDNISOLONE
  13. IBUPROFEN. [Concomitant]
     Active Substance: IBUPROFEN
  14. SYMBICORT AER [Concomitant]
     Dosage: 160-4.5
  15. RANITIDINE. [Concomitant]
     Active Substance: RANITIDINE
  16. RANITIDINE. [Concomitant]
     Active Substance: RANITIDINE
  17. LISINOPRIL. [Concomitant]
     Active Substance: LISINOPRIL
     Dates: start: 20160818, end: 20170214
  18. LISINOPRIL. [Concomitant]
     Active Substance: LISINOPRIL
     Dates: start: 20161207, end: 20170901
  19. METFORMIN [Concomitant]
     Active Substance: METFORMIN HYDROCHLORIDE
  20. VITAMIN C [Concomitant]
     Active Substance: ASCORBIC ACID
  21. BACLOFEN. [Concomitant]
     Active Substance: BACLOFEN
  22. JANUVIA [Concomitant]
     Active Substance: SITAGLIPTIN PHOSPHATE
  23. ONGLYZA [Concomitant]
     Active Substance: SAXAGLIPTIN HYDROCHLORIDE
  24. PROAIR HFA AER [Concomitant]
  25. PANTOPRAZOLE [Concomitant]
     Active Substance: PANTOPRAZOLE
  26. IBUPROFEN. [Concomitant]
     Active Substance: IBUPROFEN
  27. NEXIUM [Concomitant]
     Active Substance: ESOMEPRAZOLE MAGNESIUM
  28. PRAVASTATIN. [Concomitant]
     Active Substance: PRAVASTATIN
  29. FLUTICASONE SPR [Concomitant]
     Dates: start: 20160905, end: 20170126
  30. FLUTICASONE SPR [Concomitant]
     Dates: start: 20161226, end: 20170224
  31. HYDROCODONE BITARTRATE AND ACETAMINOPHEN [Concomitant]
     Active Substance: ACETAMINOPHEN\HYDROCODONE BITARTRATE
     Dosage: 5/325MG
  32. JANUVIA [Concomitant]
     Active Substance: SITAGLIPTIN PHOSPHATE
  33. JANUVIA [Concomitant]
     Active Substance: SITAGLIPTIN PHOSPHATE
  34. COPAXONE [Suspect]
     Active Substance: GLATIRAMER ACETATE
     Indication: MULTIPLE SCLEROSIS
     Route: 058
     Dates: start: 20150528
  35. NEXIUM [Concomitant]
     Active Substance: ESOMEPRAZOLE MAGNESIUM
  36. NEXIUM [Concomitant]
     Active Substance: ESOMEPRAZOLE MAGNESIUM
  37. NEXIUM [Concomitant]
     Active Substance: ESOMEPRAZOLE MAGNESIUM
  38. RANITIDINE. [Concomitant]
     Active Substance: RANITIDINE
  39. LISINOPRIL. [Concomitant]
     Active Substance: LISINOPRIL
  40. METFORMIN [Concomitant]
     Active Substance: METFORMIN HYDROCHLORIDE
  41. PRAVASTATIN. [Concomitant]
     Active Substance: PRAVASTATIN
  42. TIZANIDINE. [Concomitant]
     Active Substance: TIZANIDINE
  43. VITAMIN D [Concomitant]
     Active Substance: CHOLECALCIFEROL
  44. CLINDAMYCIN. [Concomitant]
     Active Substance: CLINDAMYCIN
  45. FLUTICASONE SPR [Concomitant]
  46. GABAPENTIN. [Concomitant]
     Active Substance: GABAPENTIN
  47. LISINOPRIL/HCTZ [Concomitant]
     Active Substance: HYDROCHLOROTHIAZIDE\LISINOPRIL
     Dosage: 10-12.5 (UNITS UNSPECIFIED)
  48. IBUPROFEN. [Concomitant]
     Active Substance: IBUPROFEN
  49. NEXIUM [Concomitant]
     Active Substance: ESOMEPRAZOLE MAGNESIUM
  50. MOBIC [Concomitant]
     Active Substance: MELOXICAM
  51. LISINOPRIL. [Concomitant]
     Active Substance: LISINOPRIL
  52. PRAVASTATIN. [Concomitant]
     Active Substance: PRAVASTATIN
  53. PRAVASTATIN. [Concomitant]
     Active Substance: PRAVASTATIN
  54. PRAVASTATIN. [Concomitant]
     Active Substance: PRAVASTATIN
  55. MELOXICAM. [Concomitant]
     Active Substance: MELOXICAM
  56. ASPIRIN. [Concomitant]
     Active Substance: ASPIRIN
  57. AMITRIPTYLINE [Concomitant]
     Active Substance: AMITRIPTYLINE
  58. BACLOFEN. [Concomitant]
     Active Substance: BACLOFEN
  59. IBUPROFEN. [Concomitant]
     Active Substance: IBUPROFEN
  60. LISINOPRIL. [Concomitant]
     Active Substance: LISINOPRIL
  61. MELOXICAM. [Concomitant]
     Active Substance: MELOXICAM
  62. ALBUTEROL. [Concomitant]
     Active Substance: ALBUTEROL
  63. HYOSCYAMINE. [Concomitant]
     Active Substance: HYOSCYAMINE
  64. ONDANSETRON [Concomitant]
     Active Substance: ONDANSETRON
     Dosage: ODT
  65. PANTOPRAZOLE [Concomitant]
     Active Substance: PANTOPRAZOLE
  66. LISINOPRIL. [Concomitant]
     Active Substance: LISINOPRIL
  67. METFORMIN [Concomitant]
     Active Substance: METFORMIN HYDROCHLORIDE
  68. CARBAMAZEPIN [Concomitant]
     Active Substance: CARBAMAZEPINE
  69. ZOFRAN [Concomitant]
     Active Substance: ONDANSETRON HYDROCHLORIDE
  70. BACLOFEN. [Concomitant]
     Active Substance: BACLOFEN
  71. LISINOPRIL/HCTZ [Concomitant]
     Active Substance: HYDROCHLOROTHIAZIDE\LISINOPRIL
     Dosage: 10-12.5 (UNITS UNSPECIFIED)
  72. PEG-3350KCL SOL/SODIUM [Concomitant]

REACTIONS (9)
  - Fatigue [Not Recovered/Not Resolved]
  - Motor dysfunction [Not Recovered/Not Resolved]
  - Pruritus [Unknown]
  - Contusion [Unknown]
  - Memory impairment [Not Recovered/Not Resolved]
  - Injection site reaction [Not Recovered/Not Resolved]
  - Influenza like illness [Not Recovered/Not Resolved]
  - Nausea [Not Recovered/Not Resolved]
  - Headache [Not Recovered/Not Resolved]
